FAERS Safety Report 6813914-X (Version None)
Quarter: 2010Q3

REPORT INFORMATION
  Report Type: 
  Country: None (occurrence: None)
  Receive Date: 20100702
  Receipt Date: 20100618
  Transmission Date: 20110219
  Serious: Yes (Hospitalization)
  Sender: FDA-Public Use
  Company Number: US-SHIRE-SPV1-2010-01137

PATIENT
  Sex: Male
  Weight: 59.9 kg

DRUGS (7)
  1. ADDERALL XR 10 [Suspect]
     Dosage: 10 MG, 1X/DAY:QD
     Route: 048
     Dates: end: 20100601
  2. ADDERALL XR 10 [Suspect]
     Dosage: 20 MG, 1X/DAY:QD
     Route: 048
     Dates: start: 20100601
  3. PREVACID [Concomitant]
  4. NORVASC [Concomitant]
  5. TACROLIMUS [Concomitant]
  6. CELLCEPT [Concomitant]
  7. PREDNISONE TAB [Concomitant]

REACTIONS (2)
  - BIOPSY [None]
  - HEPATIC ENZYME INCREASED [None]
